FAERS Safety Report 5840326-8 (Version None)
Quarter: 2008Q3

REPORT INFORMATION
  Report Type: 
  Country: None (occurrence: None)
  Receive Date: 20080811
  Receipt Date: 20080730
  Transmission Date: 20090109
  Serious: Yes (Other)
  Sender: FDA-Public Use
  Company Number: US-TYCO HEALTHCARE/MALLINCKRODT-T200801230

PATIENT

DRUGS (7)
  1. OPTIMARK [Suspect]
     Indication: NUCLEAR MAGNETIC RESONANCE IMAGING
     Dosage: 20 ML, SINGLE
     Dates: start: 20060921, end: 20060921
  2. RENAGEL [Concomitant]
     Indication: DIALYSIS
     Dosage: 800 MG, TID
  3. PANTOPIAZOLE [Concomitant]
     Indication: DYSPEPSIA
     Dosage: 40 MG, QD
  4. AMBIEN CR [Concomitant]
     Indication: SLEEP DISORDER
     Dosage: 12.5 MG (2 TAB), QD
  5. HYDROCODONE BITARTRATE [Concomitant]
     Indication: PAIN
     Dosage: 500 MG, QID
  6. CETIRIZINE HCL [Concomitant]
     Indication: BLOOD PRESSURE
     Dosage: 10 MG, QD
  7. SODIUM BICARBONATE [Concomitant]
     Indication: RENAL DISORDER
     Dosage: 10 MG, BID

REACTIONS (1)
  - NEPHROGENIC SYSTEMIC FIBROSIS [None]
